FAERS Safety Report 6977480-0 (Version None)
Quarter: 2010Q3

REPORT INFORMATION
  Report Type: 
  Country: None (occurrence: None)
  Receive Date: 20100910
  Receipt Date: 20100902
  Transmission Date: 20110219
  Serious: Yes (Hospitalization)
  Sender: FDA-Public Use
  Company Number: JP-ABBOTT-08P-087-0480419-00

PATIENT
  Sex: Male
  Weight: 60 kg

DRUGS (25)
  1. HUMIRA [Suspect]
     Indication: CROHN'S DISEASE
     Route: 058
     Dates: start: 20070913
  2. IMURAN [Concomitant]
     Indication: CROHN'S DISEASE
     Route: 048
     Dates: start: 20070105, end: 20081004
  3. IMURAN [Concomitant]
     Dates: start: 20080108
  4. PENTASA [Concomitant]
     Indication: CROHN'S DISEASE
     Route: 048
     Dates: start: 20051022, end: 20081004
  5. PENTASA [Concomitant]
     Route: 048
     Dates: start: 20081008
  6. RACOL [Concomitant]
     Indication: CROHN'S DISEASE
     Route: 048
     Dates: start: 20051022, end: 20081004
  7. RACOL [Concomitant]
     Route: 048
     Dates: start: 20081008
  8. RINDERON [Concomitant]
     Indication: CROHN'S DISEASE
     Route: 048
     Dates: start: 20080822, end: 20081004
  9. RINDERON [Concomitant]
     Route: 048
     Dates: start: 20081008
  10. LAXOBERON [Concomitant]
     Indication: CONSTIPATION
     Route: 048
     Dates: start: 20070926, end: 20081004
  11. LAXOBERON [Concomitant]
     Route: 048
     Dates: start: 20081006
  12. DERMOSOL G [Concomitant]
     Indication: ECZEMA
     Dates: start: 20080303
  13. DERMOSOL G [Concomitant]
     Indication: ALOPECIA AREATA
     Dates: start: 20081008
  14. DERMOSOL G [Concomitant]
     Dates: start: 20080623
  15. HYDANTOL F [Concomitant]
     Indication: EPILEPSY
     Route: 048
     Dates: start: 20030213
  16. HYDANTOL F [Concomitant]
     Route: 048
     Dates: start: 20081008
  17. LAC B [Concomitant]
     Indication: GASTROINTESTINAL DISORDER
     Route: 048
     Dates: start: 20070324
  18. LAC B [Concomitant]
     Route: 048
     Dates: start: 20081008
  19. TAKEPRON [Concomitant]
     Indication: PROPHYLAXIS AGAINST GASTROINTESTINAL ULCER
     Route: 048
     Dates: start: 20050806
  20. GASTROM [Concomitant]
     Indication: GASTROINTESTINAL ULCER
     Route: 048
     Dates: start: 20070324
  21. BENET [Concomitant]
     Indication: OSTEOPOROSIS PROPHYLAXIS
     Route: 048
     Dates: start: 20041023
  22. GENTAMICIN [Concomitant]
     Indication: ECZEMA
     Dates: start: 20080303
  23. GENTAMICIN [Concomitant]
  24. ISODINE GARGLE [Concomitant]
     Indication: PROPHYLAXIS
     Dates: start: 20080131, end: 20081004
  25. ISODINE GARGLE [Concomitant]
     Indication: NASOPHARYNGITIS

REACTIONS (2)
  - INTESTINAL OBSTRUCTION [None]
  - PYREXIA [None]
